FAERS Safety Report 24840434 (Version 2)
Quarter: 2025Q1

REPORT INFORMATION
  Report Type: Report from Study
  Country: US (occurrence: US)
  Receive Date: 20250114
  Receipt Date: 20250127
  Transmission Date: 20250409
  Serious: Yes (Death, Hospitalization, Other)
  Sender: BAYER HEALTHCARE PHARMACEUTICALS INC.
  Company Number: US-BAYER-2025A004491

PATIENT
  Sex: Male

DRUGS (1)
  1. STIVARGA [Suspect]
     Active Substance: REGORAFENIB MONOHYDRATE
     Indication: Brain neoplasm

REACTIONS (6)
  - Glioblastoma [Fatal]
  - Brain neoplasm [Fatal]
  - Abdominal pain upper [None]
  - Large intestine perforation [None]
  - Drug intolerance [None]
  - Product use in unapproved indication [None]
